FAERS Safety Report 20153449 (Version 5)
Quarter: 2023Q4

REPORT INFORMATION
  Report Type: Report from Study
  Country: US (occurrence: US)
  Receive Date: 20211206
  Receipt Date: 20231204
  Transmission Date: 20240109
  Serious: Yes (Death, Hospitalization)
  Sender: FDA-Public Use
  Company Number: US-BAUSCH-BL-2021-040322

PATIENT
  Age: 66 Year
  Sex: Female
  Weight: 105.78 kg

DRUGS (3)
  1. XIFAXAN [Suspect]
     Active Substance: RIFAXIMIN
     Indication: Hepatic cirrhosis
     Route: 048
     Dates: start: 2021
  2. XIFAXAN [Suspect]
     Active Substance: RIFAXIMIN
     Route: 048
     Dates: end: 20220615
  3. XIFAXAN [Suspect]
     Active Substance: RIFAXIMIN
     Route: 065

REACTIONS (5)
  - Hepatic cirrhosis [Fatal]
  - Hypotension [Unknown]
  - Blood magnesium decreased [Unknown]
  - Product use issue [Unknown]
  - Hospice care [Unknown]

NARRATIVE: CASE EVENT DATE: 20230101
